FAERS Safety Report 7438822-5 (Version None)
Quarter: 2011Q2

REPORT INFORMATION
  Report Type: 
  Country: None (occurrence: None)
  Receive Date: 20110426
  Receipt Date: 20110418
  Transmission Date: 20111010
  Serious: Yes (Hospitalization)
  Sender: FDA-Public Use
  Company Number: US-SANOFI-AVENTIS-2011SA024329

PATIENT
  Age: 54 Year
  Sex: Female

DRUGS (1)
  1. LANTUS [Suspect]
     Dosage: DOSE:4 UNIT(S)
     Route: 058

REACTIONS (4)
  - DYSPEPSIA [None]
  - DIABETES MELLITUS [None]
  - VOMITING [None]
  - NAUSEA [None]
